FAERS Safety Report 9161162 (Version 1)
Quarter: 2013Q1

REPORT INFORMATION
  Report Type: Spontaneous
  Country: JP (occurrence: JP)
  Receive Date: 20130313
  Receipt Date: 20130313
  Transmission Date: 20140127
  Serious: Yes (Other)
  Sender: FDA-Public Use
  Company Number: JP-009507513-1303JPN004848

PATIENT
  Age: 30 Year
  Sex: Male

DRUGS (2)
  1. GASTER [Suspect]
     Dosage: UNK
     Route: 048
  2. UNSPECIFIED [Suspect]
     Route: 048

REACTIONS (3)
  - Small intestinal stenosis [Unknown]
  - Small intestine ulcer [Unknown]
  - Small intestinal haemorrhage [Unknown]
